FAERS Safety Report 4449251-0 (Version None)
Quarter: 2004Q3

REPORT INFORMATION
  Report Type: 
  Country: None (occurrence: None)
  Receive Date: 20040910
  Receipt Date: 20040831
  Transmission Date: 20050211
  Serious: Yes (Death)
  Sender: FDA-Public Use
  Company Number: HQWYE479423AUG04

PATIENT
  Age: 79 Year
  Sex: Male

DRUGS (20)
  1. MINOCIN [Suspect]
     Indication: PNEUMONIA
     Dosage: 200MG/DAY
     Route: 048
     Dates: start: 20040816, end: 20040819
  2. PIPERACILLIN SODIUM [Concomitant]
  3. CLINDAMYCIN HCL [Concomitant]
  4. LEVOFLOXACIN [Concomitant]
  5. SELBEX (TEPRENONE) [Concomitant]
  6. LAC B (LACTOBACILLUS BIFIDUS, LYOPHILIZED) [Concomitant]
  7. BLOPRESS (CANDESARTAN CILEXETIL) [Concomitant]
  8. FUROSEMIDE [Concomitant]
  9. VANARL N (TOCOPHERYL NICOTINATE) [Concomitant]
  10. RADISTIM (NICARDIPINE HYDROCHLORIDE) [Concomitant]
  11. MAGNESIUM OXIDE (MAGNESIUM OXIDE) [Concomitant]
  12. HUSCODE (CHLORPHENAMINE MALEATE/DIHYDROCODEINE PHOSPHATE/METHYLEPHEDRI [Concomitant]
  13. AMBROXOL HYDROCHLORIDE (AMBROXOL HYDROCHLORIDE) [Concomitant]
  14. DIOVAN [Concomitant]
  15. AMLODIPINE BESYLATE [Concomitant]
  16. LASIX [Concomitant]
  17. JUVELA NICOTINATE (TOCOPHERYL NICOTINATE) [Concomitant]
  18. MEDICON (DEXTROMETHORPHAN HYDROBROMIDE) [Concomitant]
  19. MUCODYNE (CARBOCISTEINE) [Concomitant]
  20. GRAMALIL (TIAPRIDE HYDROCHLORIDE) [Concomitant]

REACTIONS (1)
  - INTERSTITIAL LUNG DISEASE [None]
